FAERS Safety Report 9451420 (Version 1)
Quarter: 2013Q3

REPORT INFORMATION
  Report Type: Spontaneous
  Country: IT (occurrence: IT)
  Receive Date: 20130809
  Receipt Date: 20130809
  Transmission Date: 20140515
  Serious: Yes (Hospitalization)
  Sender: FDA-Public Use
  Company Number: PHHY2013IT084558

PATIENT
  Age: 79 Year
  Sex: Male

DRUGS (2)
  1. INDOMETHACIN [Suspect]
     Indication: BACK PAIN
     Dosage: 100 MG, PER DAY
  2. LISINOPRIL/HYDROCHLOROTHIAZIDE [Concomitant]
     Indication: HYPERTENSION
     Dates: start: 1996

REACTIONS (10)
  - Portal vein thrombosis [Recovered/Resolved]
  - Abdominal pain [Recovered/Resolved]
  - Nausea [Unknown]
  - Vomiting [Unknown]
  - Dyspepsia [Unknown]
  - Ascites [Unknown]
  - Haematochezia [Unknown]
  - Platelet count decreased [Recovered/Resolved]
  - Leukocytosis [Unknown]
  - Abdominal distension [Unknown]
